FAERS Safety Report 4526414-7 (Version None)
Quarter: 2004Q4

REPORT INFORMATION
  Report Type: 
  Country: None (occurrence: None)
  Receive Date: 20041213
  Receipt Date: 20040924
  Transmission Date: 20050328
  Serious: No
  Sender: FDA-Public Use
  Company Number: 8949

PATIENT
  Age: 74 Year
  Sex: Female

DRUGS (2)
  1. AMIODARONE HCL [Suspect]
     Indication: ATRIAL FIBRILLATION
     Dosage: PO
     Route: 048
     Dates: start: 20021016, end: 20040901
  2. PNEUMOCOCCAL POLYSACCHARIDE VACCINE [Concomitant]

REACTIONS (1)
  - PNEUMONITIS [None]
